FAERS Safety Report 6346768-9 (Version None)
Quarter: 2009Q3

REPORT INFORMATION
  Report Type: 
  Country: None (occurrence: None)
  Receive Date: 20090909
  Receipt Date: 20090903
  Transmission Date: 20100115
  Serious: Yes (Death, Hospitalization, Other)
  Sender: FDA-Public Use
  Company Number: JP-ABBOTT-09P-087-0580983-00

PATIENT
  Sex: Male
  Weight: 48 kg

DRUGS (18)
  1. HUMIRA [Suspect]
     Indication: RHEUMATOID ARTHRITIS
     Route: 058
     Dates: start: 20090407, end: 20090609
  2. METHOTREXATE [Suspect]
     Indication: RHEUMATOID ARTHRITIS
     Route: 048
     Dates: end: 20090610
  3. ACTARIT [Concomitant]
     Indication: RHEUMATOID ARTHRITIS
     Route: 048
     Dates: start: 20070921, end: 20090617
  4. PREDNISOLONE [Concomitant]
     Indication: RHEUMATOID ARTHRITIS
     Route: 048
     Dates: end: 20090420
  5. PREDNISOLONE [Concomitant]
     Route: 048
     Dates: start: 20090421, end: 20090511
  6. PREDNISOLONE [Concomitant]
     Route: 048
     Dates: start: 20090512, end: 20090525
  7. PREDNISOLONE [Concomitant]
     Route: 048
     Dates: start: 20090526, end: 20090616
  8. DICLOFENAC SODIUM [Concomitant]
     Indication: RHEUMATOID ARTHRITIS
     Route: 048
     Dates: end: 20090616
  9. NIZATIDINE [Concomitant]
     Indication: PROPHYLAXIS
     Route: 048
     Dates: end: 20090616
  10. NIZATIDINE [Concomitant]
     Indication: GASTROINTESTINAL DISORDER
  11. PYRIDOXAL PHOSPHATE HYDRATE [Concomitant]
     Indication: PROPHYLAXIS
     Route: 048
     Dates: start: 20090226, end: 20090616
  12. PYRIDOXAL PHOSPHATE HYDRATE [Concomitant]
     Indication: ADVERSE DRUG REACTION
  13. ISONIAZID [Concomitant]
     Indication: ANTIBIOTIC PROPHYLAXIS
     Route: 048
     Dates: start: 20090226, end: 20090616
  14. ALFACALCIDOL [Concomitant]
     Indication: OSTEOPOROSIS
     Route: 048
     Dates: end: 20090616
  15. ATORVASTATIN CALCIUM HYDRATE [Concomitant]
     Indication: DYSLIPIDAEMIA
     Route: 048
     Dates: end: 20090616
  16. ZOLPIDEM TARTRATE [Concomitant]
     Indication: INSOMNIA
     Route: 048
     Dates: end: 20090616
  17. FOLIC ACID [Concomitant]
     Indication: PROPHYLAXIS
     Route: 048
     Dates: end: 20090611
  18. FOLIC ACID [Concomitant]
     Indication: ADVERSE DRUG REACTION

REACTIONS (13)
  - BLOOD PRESSURE DECREASED [None]
  - DEHYDRATION [None]
  - DISSEMINATED INTRAVASCULAR COAGULATION [None]
  - GENERAL PHYSICAL HEALTH DETERIORATION [None]
  - HYPOALBUMINAEMIA [None]
  - LUNG DISORDER [None]
  - MULTI-ORGAN FAILURE [None]
  - PANCYTOPENIA [None]
  - PNEUMONIA LEGIONELLA [None]
  - RESPIRATORY DISORDER [None]
  - SYSTEMIC INFLAMMATORY RESPONSE SYNDROME [None]
  - URINE OUTPUT DECREASED [None]
  - WHITE BLOOD CELL COUNT DECREASED [None]
